FAERS Safety Report 6764590-6 (Version None)
Quarter: 2010Q2

REPORT INFORMATION
  Report Type: 
  Country: None (occurrence: None)
  Receive Date: 20100609
  Receipt Date: 20100504
  Transmission Date: 20101027
  Serious: No
  Sender: FDA-Public Use
  Company Number: 2010010736

PATIENT
  Age: 4 Year
  Sex: Male
  Weight: 14.9687 kg

DRUGS (2)
  1. CHILDREN'S ZYRTEC ALLERGY [Suspect]
     Indication: HYPERSENSITIVITY
     Dosage: A TEASPOON ONCE DAILY, ORAL
     Route: 048
     Dates: start: 20100101, end: 20100501
  2. IBUPROFEN [Suspect]
     Indication: PYREXIA

REACTIONS (5)
  - DIARRHOEA [None]
  - FLATULENCE [None]
  - HEADACHE [None]
  - PRODUCT QUALITY ISSUE [None]
  - VOMITING [None]
